FAERS Safety Report 20156340 (Version 4)
Quarter: 2022Q2

REPORT INFORMATION
  Report Type: Spontaneous
  Country: US (occurrence: US)
  Receive Date: 20211207
  Receipt Date: 20220607
  Transmission Date: 20220720
  Serious: Yes (Other)
  Sender: FDA-Public Use
  Company Number: US-PFIZER INC-202101649361

PATIENT
  Age: 69 Year
  Sex: Female

DRUGS (1)
  1. IBRANCE [Suspect]
     Active Substance: PALBOCICLIB
     Dosage: 100 MG

REACTIONS (5)
  - Neuropathy peripheral [Recovering/Resolving]
  - Intentional product misuse [Unknown]
  - Pre-existing condition improved [Recovering/Resolving]
  - Vomiting [Unknown]
  - Decreased appetite [Unknown]
